FAERS Safety Report 5243988-1 (Version None)
Quarter: 2007Q1

REPORT INFORMATION
  Report Type: 
  Country: None (occurrence: None)
  Receive Date: 20070215
  Receipt Date: 20070201
  Transmission Date: 20070707
  Serious: Yes (Hospitalization, Other)
  Sender: FDA-Public Use
  Company Number: GXKR2006JP06867

PATIENT
  Sex: Male
  Weight: 62 kg

DRUGS (11)
  1. RIFAMPICIN [Suspect]
     Indication: ATYPICAL MYCOBACTERIAL INFECTION
     Dosage: 450 MG, ORAL
     Route: 048
     Dates: start: 20060106, end: 20061225
  2. ETHAMBUTOL HYDROCHLORIDE [Concomitant]
  3. CLARITHROMYCIN [Concomitant]
  4. LEVOTHYROXINE SODIUM [Concomitant]
  5. LANSOPRAZOLE [Concomitant]
  6. AMOBAN (ZOPICLONE) [Concomitant]
  7. ALLOPURINOL [Concomitant]
  8. MUCOSTA (REBAMIPIDE) [Concomitant]
  9. GLYCORAN (METFORMIN HYDROCHLORIDE) [Concomitant]
  10. BASEN (VOGLIBOSE) [Concomitant]
  11. STEROIDS NOS (NO INGREDIENTS/SUBSTANCES) [Concomitant]

REACTIONS (5)
  - CONDITION AGGRAVATED [None]
  - GENERAL PHYSICAL HEALTH DETERIORATION [None]
  - HYPOTHYROIDISM [None]
  - MALAISE [None]
  - RASH [None]
